FAERS Safety Report 5020935-9 (Version None)
Quarter: 2006Q2

REPORT INFORMATION
  Report Type: 
  Country: None (occurrence: None)
  Receive Date: 20060607
  Receipt Date: 20060607
  Transmission Date: 20061013
  Serious: Yes (Disabling)
  Sender: FDA-Public Use
  Company Number: None

PATIENT
  Age: 67 Year
  Sex: Male
  Weight: 85 kg

DRUGS (9)
  1. AMIODARONE    200MG [Suspect]
     Indication: ATRIAL FIBRILLATION
     Dosage: 200MG  QD  PO
     Route: 048
     Dates: start: 20040720, end: 20060324
  2. ATENOLOL [Suspect]
     Indication: CORONARY ARTERY DISEASE
     Dosage: 50MG  QD  PO
     Route: 048
     Dates: start: 20050513, end: 20060324
  3. ATENOLOL [Suspect]
     Indication: HYPERTENSION
     Dosage: 50MG  QD  PO
     Route: 048
     Dates: start: 20050513, end: 20060324
  4. BUSPAR [Concomitant]
  5. CITALOPRAM HYDROBROMIDE [Concomitant]
  6. OMEPRAZOLE [Concomitant]
  7. WARFARIN SODIUM [Concomitant]
  8. OXYCODONE AND ACETAMINOPHEN [Concomitant]
  9. SIMVASTATIN [Concomitant]

REACTIONS (2)
  - HYPOTHYROIDISM [None]
  - SINUS BRADYCARDIA [None]
